FAERS Safety Report 4407480-6 (Version None)
Quarter: 2004Q3

REPORT INFORMATION
  Report Type: 
  Country: None (occurrence: None)
  Receive Date: 20040721
  Receipt Date: 20040702
  Transmission Date: 20050211
  Serious: Yes (Life-Threatening, Other)
  Sender: FDA-Public Use
  Company Number: JP_040603288

PATIENT
  Age: 71 Year
  Sex: Male
  Weight: 31 kg

DRUGS (10)
  1. PERMAX [Suspect]
     Indication: PARKINSON'S DISEASE
     Dosage: 1500 UG DAY
     Dates: start: 20021105, end: 20040526
  2. CARBIDOPA AND LEVODOPA [Concomitant]
  3. DOPS (DROXIDOPA) [Concomitant]
  4. POLYCARBOPHIL DISEASE [Concomitant]
  5. MUCOSTA (REBAMIPIDE) [Concomitant]
  6. METLIGINE (MIDODRINE HYDROCHLORIDE) [Concomitant]
  7. NAUZELIN (DOMPERIDONE) [Concomitant]
  8. METHYCOBAL (MECOBALAMIN) [Concomitant]
  9. JUVELA NICOTINATE (TOCOPHERYL NICOTINATE) [Concomitant]
  10. FAMOTIDINE [Concomitant]

REACTIONS (22)
  - AORTIC VALVE INCOMPETENCE [None]
  - ASTHENIA [None]
  - BLOOD CHLORIDE DECREASED [None]
  - BLOOD GLUCOSE DECREASED [None]
  - BLOOD SODIUM DECREASED [None]
  - BUNDLE BRANCH BLOCK RIGHT [None]
  - C-REACTIVE PROTEIN INCREASED [None]
  - CARDIAC FAILURE CONGESTIVE [None]
  - CARDIOMEGALY [None]
  - CONDITION AGGRAVATED [None]
  - DEMENTIA [None]
  - DYSURIA [None]
  - GENERAL PHYSICAL HEALTH DETERIORATION [None]
  - HALLUCINATION [None]
  - MARKEDLY REDUCED DIETARY INTAKE [None]
  - MITRAL VALVE INCOMPETENCE [None]
  - PARKINSONISM [None]
  - PLEURAL EFFUSION [None]
  - PNEUMONIA ASPIRATION [None]
  - PO2 INCREASED [None]
  - PURPURA [None]
  - TRICUSPID VALVE INCOMPETENCE [None]
